FAERS Safety Report 6406099-5 (Version None)
Quarter: 2009Q4

REPORT INFORMATION
  Report Type: 
  Country: None (occurrence: None)
  Receive Date: 20091016
  Receipt Date: 20091016
  Transmission Date: 20100525
  Serious: Yes (Hospitalization, Disabling)
  Sender: FDA-Public Use
  Company Number: None

PATIENT
  Age: 20 Year
  Sex: Female
  Weight: 61.2356 kg

DRUGS (1)
  1. SCOPOLAMINE [Suspect]
     Indication: DIZZINESS
     Dosage: 1 PATCH EVERY 3 DAYS TRANSDERMAL
     Route: 062
     Dates: start: 20090830, end: 20091001

REACTIONS (8)
  - DIZZINESS [None]
  - DRUG DEPENDENCE [None]
  - EYE COMPLICATION ASSOCIATED WITH DEVICE [None]
  - NAUSEA [None]
  - SOMNOLENCE [None]
  - VESTIBULAR DISORDER [None]
  - VISUAL IMPAIRMENT [None]
  - WITHDRAWAL SYNDROME [None]
